FAERS Safety Report 5502762-9 (Version None)
Quarter: 2007Q4

REPORT INFORMATION
  Report Type: 
  Country: None (occurrence: None)
  Receive Date: 20071031
  Receipt Date: 20071026
  Transmission Date: 20080405
  Serious: Yes (Hospitalization)
  Sender: FDA-Public Use
  Company Number: BR-BRISTOL-MYERS SQUIBB COMPANY-13960174

PATIENT
  Age: 56 Year
  Sex: Male
  Weight: 84 kg

DRUGS (5)
  1. MEGESTAT [Suspect]
     Indication: INCREASED APPETITE
     Route: 048
     Dates: start: 20071001, end: 20071004
  2. PROPANOL [Concomitant]
  3. DIGESAN [Concomitant]
  4. OMEPRAZOLE [Concomitant]
  5. SPIRONOLACTONE [Concomitant]

REACTIONS (1)
  - ENCEPHALOPATHY [None]
